FAERS Safety Report 23221863 (Version 1)
Quarter: 2023Q4

REPORT INFORMATION
  Report Type: Spontaneous
  Country: US (occurrence: US)
  Receive Date: 20231123
  Receipt Date: 20231123
  Transmission Date: 20240109
  Serious: No
  Sender: FDA-Public Use
  Company Number: US-ELI_LILLY_AND_COMPANY-US202311012088

PATIENT
  Sex: Male

DRUGS (1)
  1. MOUNJARO [Suspect]
     Active Substance: TIRZEPATIDE
     Indication: Product used for unknown indication
     Dosage: 2.5 MG, UNKNOWN
     Route: 065
     Dates: start: 202310

REACTIONS (5)
  - Insomnia [Recovering/Resolving]
  - Dyspnoea [Unknown]
  - Neck pain [Recovering/Resolving]
  - Nasal congestion [Unknown]
  - Ear discomfort [Unknown]
